FAERS Safety Report 15527768 (Version 1)
Quarter: 2018Q4

REPORT INFORMATION
  Report Type: Spontaneous
  Country: US (occurrence: US)
  Receive Date: 20181020
  Receipt Date: 20181020
  Transmission Date: 20190205
  Serious: No
  Sender: FDA-Public Use
  Company Number: US-JNJFOC-20181009150

PATIENT
  Age: 82 Year
  Sex: Male
  Weight: 111 kg

DRUGS (10)
  1. VITAMIN B12 [Concomitant]
     Active Substance: CYANOCOBALAMIN
  2. UBIDECARENONE [Concomitant]
     Active Substance: UBIDECARENONE
  3. ASPIRIN. [Concomitant]
     Active Substance: ASPIRIN
  4. FLU [Suspect]
     Active Substance: INFLUENZA VIRUS VACCINE
     Indication: PRODUCT USED FOR UNKNOWN INDICATION
     Route: 065
     Dates: start: 20180927
  5. FUROSEMIDE. [Concomitant]
     Active Substance: FUROSEMIDE
  6. VITAMIN D [Concomitant]
     Active Substance: CHOLECALCIFEROL
  7. IMBRUVICA [Suspect]
     Active Substance: IBRUTINIB
     Indication: CHRONIC LYMPHOCYTIC LEUKAEMIA
     Route: 048
     Dates: start: 20180801
  8. POTASSIUM [Concomitant]
     Active Substance: POTASSIUM
  9. ALLOPURINOL. [Concomitant]
     Active Substance: ALLOPURINOL
  10. VYTORIN [Concomitant]
     Active Substance: EZETIMIBE\SIMVASTATIN

REACTIONS (2)
  - Pain in extremity [Not Recovered/Not Resolved]
  - Fatigue [Recovering/Resolving]

NARRATIVE: CASE EVENT DATE: 20180928
